FAERS Safety Report 5332258-9 (Version None)
Quarter: 2007Q2

REPORT INFORMATION
  Report Type: 
  Country: None (occurrence: None)
  Receive Date: 20070306
  Receipt Date: 20060522
  Transmission Date: 20071010
  Serious: Yes (Death)
  Sender: FDA-Public Use
  Company Number: A03200603296

PATIENT

DRUGS (1)
  1. PLAVIX [Suspect]
     Dosage: ORAL
     Route: 048

REACTIONS (1)
  - CEREBRAL HAEMORRHAGE [None]
